FAERS Safety Report 10199031 (Version 1)
Quarter: 2014Q2

REPORT INFORMATION
  Report Type: Spontaneous
  Country: US (occurrence: US)
  Receive Date: 20140527
  Receipt Date: 20140527
  Transmission Date: 20141212
  Serious: No
  Sender: FDA-Public Use
  Company Number: US-NOVEN-13US007890

PATIENT
  Age: 20 Year
  Sex: Female
  Weight: 74.83 kg

DRUGS (3)
  1. DAYTRANA [Suspect]
     Indication: ATTENTION DEFICIT/HYPERACTIVITY DISORDER
     Dosage: UNK
     Route: 062
     Dates: start: 201309
  2. LAMICTAL [Concomitant]
     Indication: BIPOLAR I DISORDER
     Dosage: UNK
     Route: 048
     Dates: start: 2010
  3. WELLBUTRIN [Concomitant]
     Indication: BIPOLAR I DISORDER
     Dosage: UNK
     Route: 048
     Dates: start: 2010

REACTIONS (5)
  - Incorrect drug administration duration [Not Recovered/Not Resolved]
  - Drug prescribing error [Not Recovered/Not Resolved]
  - Off label use [Not Recovered/Not Resolved]
  - Product quality issue [Not Recovered/Not Resolved]
  - No adverse event [Unknown]
